FAERS Safety Report 5480675-9 (Version None)
Quarter: 2007Q4

REPORT INFORMATION
  Report Type: 
  Country: None (occurrence: None)
  Receive Date: 20071003
  Receipt Date: 20070924
  Transmission Date: 20080405
  Serious: Yes (Other)
  Sender: FDA-Public Use
  Company Number: 2007329741

PATIENT
  Age: 74 Year
  Sex: Male
  Weight: 74.4 kg

DRUGS (3)
  1. ROGAINE 5 [Suspect]
     Indication: ALOPECIA
     Dosage: 1/2 CAPFUL TWICE A DAY, TOPICAL
     Route: 061
     Dates: start: 20070806, end: 20070901
  2. DRUG, UNSPECIFIED (DRUG, UNSPECIFIED) [Concomitant]
  3. AMLODIPINE [Concomitant]

REACTIONS (2)
  - ERYTHEMA [None]
  - OEDEMA PERIPHERAL [None]
